FAERS Safety Report 16657414 (Version 3)
Quarter: 2020Q2

REPORT INFORMATION
  Report Type: Spontaneous
  Country: US (occurrence: US)
  Receive Date: 20190801
  Receipt Date: 20200602
  Transmission Date: 20200713
  Serious: Yes (Other)
  Sender: FDA-Public Use
  Company Number: US-GILEAD-2019-0420476

PATIENT
  Age: 56 Year
  Sex: Female

DRUGS (15)
  1. ATORVASTATIN [Concomitant]
     Active Substance: ATORVASTATIN
  2. GLYBURIDE. [Concomitant]
     Active Substance: GLYBURIDE
  3. TRUVADA [Suspect]
     Active Substance: EMTRICITABINE\TENOFOVIR DISOPROXIL FUMARATE
     Indication: HIV INFECTION
     Dosage: UNK
     Route: 048
     Dates: start: 2010, end: 2018
  4. ASPIRIN (E.C.) [Concomitant]
     Active Substance: ASPIRIN
  5. TRAMADOL. [Concomitant]
     Active Substance: TRAMADOL
  6. INVOKANA [Concomitant]
     Active Substance: CANAGLIFLOZIN
  7. VITAMIN C [Concomitant]
     Active Substance: ASCORBIC ACID
  8. LEVOTHYROXINE. [Concomitant]
     Active Substance: LEVOTHYROXINE
  9. BUPROPION. [Concomitant]
     Active Substance: BUPROPION
  10. METFORMIN [Concomitant]
     Active Substance: METFORMIN HYDROCHLORIDE
  11. GABAPENTIN. [Concomitant]
     Active Substance: GABAPENTIN
  12. LISINOPRIL. [Concomitant]
     Active Substance: LISINOPRIL
  13. HYDROCODONE/ACETAMINOPHEN [Concomitant]
     Active Substance: ACETAMINOPHEN\HYDROCODONE
  14. OMEGA 3 COMPLEX [SALMON OIL] [Concomitant]
  15. THERA-M [Concomitant]

REACTIONS (11)
  - Pain [Unknown]
  - Renal failure [Unknown]
  - Bone loss [Unknown]
  - Emotional distress [Unknown]
  - Economic problem [Not Recovered/Not Resolved]
  - Osteonecrosis [Not Recovered/Not Resolved]
  - Anhedonia [Unknown]
  - Osteonecrosis [Unknown]
  - Chronic kidney disease [Not Recovered/Not Resolved]
  - Anxiety [Unknown]
  - Fracture [Unknown]

NARRATIVE: CASE EVENT DATE: 201801
